FAERS Safety Report 8019855-7 (Version None)
Quarter: 2011Q4

REPORT INFORMATION
  Report Type: 
  Country: None (occurrence: None)
  Receive Date: 20111227
  Receipt Date: 20111214
  Transmission Date: 20120403
  Serious: Yes (Hospitalization, Other)
  Sender: FDA-Public Use
  Company Number: 215983

PATIENT
  Age: 81 Year
  Sex: Female

DRUGS (1)
  1. INNOHEP [Suspect]
     Indication: VENA CAVA THROMBOSIS
     Dosage: SUBCUTANEOUS
     Route: 058

REACTIONS (2)
  - HAEMOGLOBIN DECREASED [None]
  - INJECTION SITE HAEMATOMA [None]
